FAERS Safety Report 10881356 (Version 3)
Quarter: 2015Q2

REPORT INFORMATION
  Report Type: Report from Study
  Country: BR (occurrence: BR)
  Receive Date: 20150303
  Receipt Date: 20150427
  Transmission Date: 20150821
  Serious: Yes (Other)
  Sender: FDA-Public Use
  Company Number: PHHY2015BR017050

PATIENT
  Age: 57 Year
  Sex: Female
  Weight: 85 kg

DRUGS (10)
  1. PANTOPRAZOLE [Concomitant]
     Active Substance: PANTOPRAZOLE SODIUM
     Indication: GASTRITIS
     Dosage: 1 DF (40 MG), QD (FROM MORE THAN 3 YEARS AGO)
     Route: 048
  2. ACLASTA [Suspect]
     Active Substance: ZOLEDRONIC ACID
     Dosage: 5 MG, ONCE YEARLY (1 AMPULE)
     Route: 042
     Dates: start: 20150210
  3. CALCIUM + VIT D [Concomitant]
     Active Substance: CALCIUM\VITAMIN D
     Indication: OSTEOPOROSIS
     Dosage: 4 DF, QD (5 YEARS)
     Route: 048
  4. PURAN [Concomitant]
     Active Substance: LEVOTHYROXINE SODIUM
     Indication: HYPOTHYROIDISM
     Dosage: 1 DF, QD (20 YEARS AGO)
     Route: 048
  5. ATENOLOL. [Concomitant]
     Active Substance: ATENOLOL
     Indication: HYPERTENSION
     Dosage: 1 DF (50 MG), QD (6 OR 7 MONTHS AGO)
     Route: 048
  6. BART H [Concomitant]
     Indication: HYPERTENSION
     Dosage: 1 DF, QD (FROM 6 OR 7 MONTHS AGO)
     Route: 048
  7. ACLASTA [Suspect]
     Active Substance: ZOLEDRONIC ACID
     Indication: OSTEOPOROSIS
     Dosage: 5 MG, ONCE YEARLY (1 AMPULE)
     Route: 042
     Dates: start: 2012
  8. SIMVASTATIN. [Concomitant]
     Active Substance: SIMVASTATIN
     Indication: BLOOD CHOLESTEROL INCREASED
     Dosage: 1 DF, EACH 2 DAYS (FROM A LONG TIME AGO)
     Route: 048
  9. METFORMIN [Concomitant]
     Active Substance: METFORMIN HYDROCHLORIDE
     Indication: DIABETES MELLITUS
     Dosage: 1 DF, QD (STARTED 3 YRS AGO, STOPPED 8 MONTHS AGO)
     Route: 048
  10. CALCIUM + VIT D [Concomitant]
     Active Substance: CALCIUM\VITAMIN D
     Dosage: 2 DF, QD (STOPPED ONE YEAR AGO)
     Route: 048

REACTIONS (19)
  - Dermatitis allergic [Not Recovered/Not Resolved]
  - Stress [Not Recovered/Not Resolved]
  - Rash generalised [Not Recovered/Not Resolved]
  - Skin atrophy [Not Recovered/Not Resolved]
  - Contusion [Not Recovered/Not Resolved]
  - Varicose vein [Not Recovered/Not Resolved]
  - Memory impairment [Not Recovered/Not Resolved]
  - Sluggishness [Unknown]
  - Poor quality sleep [Not Recovered/Not Resolved]
  - Hypertension [Recovered/Resolved]
  - Pain [Unknown]
  - Fibromyalgia [Unknown]
  - Pruritus [Not Recovered/Not Resolved]
  - Blood blister [Not Recovered/Not Resolved]
  - Concomitant disease progression [Not Recovered/Not Resolved]
  - Fatigue [Unknown]
  - Arthralgia [Unknown]
  - Ulcer [Unknown]
  - Abdominal pain upper [Recovering/Resolving]

NARRATIVE: CASE EVENT DATE: 201501
